FAERS Safety Report 7700817-1 (Version None)
Quarter: 2011Q3

REPORT INFORMATION
  Report Type: 
  Country: None (occurrence: None)
  Receive Date: 20110822
  Receipt Date: 20110819
  Transmission Date: 20111222
  Serious: Yes (Death, Life-Threatening, Hospitalization, Other)
  Sender: FDA-Public Use
  Company Number: JP-B.I. PHARMACEUTICALS,INC./RIDGEFIELD-2011-BP-19838NB

PATIENT
  Sex: Female
  Weight: 39 kg

DRUGS (15)
  1. FERROUS CITRATE [Concomitant]
     Indication: NEPHROGENIC ANAEMIA
     Dosage: 50 MG
     Route: 048
  2. MAGNESIUM OXIDE [Concomitant]
     Dosage: 1 MG
     Route: 048
     Dates: start: 20110110
  3. PRADAXA [Suspect]
     Dosage: 220 MG
     Route: 048
     Dates: start: 20110714, end: 20110731
  4. TICLOPIDINE HCL [Suspect]
     Indication: CARDIAC FAILURE CONGESTIVE
     Dosage: 200 MG
     Route: 048
     Dates: start: 19911023
  5. SHIGYAKU-SAN [Concomitant]
     Indication: AFFECT LABILITY
     Dosage: 7.5 G
     Route: 048
     Dates: start: 20110811
  6. LASIX [Concomitant]
     Indication: CARDIAC FAILURE CONGESTIVE
     Dosage: 60 MG
     Route: 048
     Dates: start: 19911023
  7. ALDACTONE [Concomitant]
     Indication: CARDIAC FAILURE CONGESTIVE
     Dosage: 2.5 MG
     Route: 048
     Dates: start: 19911023
  8. PHENYTOIN SODIUM CAP [Concomitant]
     Indication: CONVULSION
     Dosage: 250 MG
     Route: 042
     Dates: start: 20110731, end: 20110801
  9. MIDAZOLAM HCL [Concomitant]
     Indication: CONVULSION
     Dosage: 24 MG
     Route: 042
     Dates: start: 20110801
  10. ALLOPURINOL [Concomitant]
     Indication: GOUT
     Dosage: 200 MG
     Route: 048
     Dates: start: 19911023
  11. OMEPRAZOLE [Concomitant]
     Indication: GASTROINTESTINAL HAEMORRHAGE
     Dosage: 40 MG
     Route: 042
     Dates: start: 20110731
  12. TIENAM [Concomitant]
     Indication: MENINGITIS
     Dosage: 2 MG
     Route: 042
     Dates: start: 20110731
  13. DIGOXIN [Concomitant]
     Indication: CARDIAC FAILURE CONGESTIVE
     Dosage: 0.125 MG
     Route: 048
     Dates: start: 19911023
  14. TRAZODONE HYDROCHLORIDE [Concomitant]
     Indication: DEPRESSION
     Dosage: 50 MG
     Route: 048
  15. SIGMART [Concomitant]
     Indication: CARDIAC FAILURE CONGESTIVE
     Dosage: 10 MG
     Route: 048
     Dates: start: 19911023

REACTIONS (6)
  - ANAEMIA [None]
  - MELAENA [None]
  - MENINGITIS [None]
  - DECREASED APPETITE [None]
  - ALTERED STATE OF CONSCIOUSNESS [None]
  - GASTROINTESTINAL HAEMORRHAGE [None]
